FAERS Safety Report 5091937-1 (Version None)
Quarter: 2006Q3

REPORT INFORMATION
  Report Type: 
  Country: None (occurrence: None)
  Receive Date: 20060824
  Receipt Date: 20060811
  Transmission Date: 20061208
  Serious: Yes (Hospitalization)
  Sender: FDA-Public Use
  Company Number: AND_0412_2006

PATIENT
  Age: 77 Year
  Sex: Male

DRUGS (14)
  1. METFORMIN [Suspect]
     Indication: DIABETES MELLITUS NON-INSULIN-DEPENDENT
     Dosage: 1 G TID PO
     Route: 048
     Dates: end: 20060619
  2. ALLOPURINOL [Concomitant]
  3. ASPIRIN [Concomitant]
  4. BENDROFLUMETHIAZIDE [Concomitant]
  5. DIGOXIN [Concomitant]
  6. DIPYRIDAMOLE [Concomitant]
  7. FUROSEMIDE [Concomitant]
  8. GLIMEPIRIDE [Concomitant]
  9. HALOPERIDOL [Concomitant]
  10. LANSOPRAZOLE [Concomitant]
  11. LISINOPRIL [Concomitant]
  12. ROSIGLITAZONE [Concomitant]
  13. SIMVASTATIN [Concomitant]
  14. TIMOLOL MALEATE [Concomitant]

REACTIONS (3)
  - BLOOD CREATININE INCREASED [None]
  - BLOOD POTASSIUM INCREASED [None]
  - LACTIC ACIDOSIS [None]
